FAERS Safety Report 24444448 (Version 2)
Quarter: 2024Q4

REPORT INFORMATION
  Report Type: Report from Study
  Country: US (occurrence: US)
  Receive Date: 20241016
  Receipt Date: 20241017
  Transmission Date: 20250115
  Serious: No
  Sender: ROCHE
  Company Number: US-ROCHE-2812056

PATIENT
  Age: 61 Year
  Sex: Female

DRUGS (2)
  1. RITUXAN [Suspect]
     Active Substance: RITUXIMAB
     Indication: Multiple sclerosis
     Dosage: THEN EVERY 4 MONTHS
     Route: 041
  2. OCREVUS [Suspect]
     Active Substance: OCRELIZUMAB
     Indication: Multiple sclerosis
     Dosage: DATE OF TREATMENT: 11/SEP/2017, 13/MAR/2018, 28/AUG/2018, 07/JAN/2019, 24/JUN/2019, 25/NOV/2019?PRES
     Route: 065

REACTIONS (3)
  - Sensation of foreign body [Not Recovered/Not Resolved]
  - Psoriasis [Unknown]
  - Off label use [Unknown]
